FAERS Safety Report 4501192-6 (Version None)
Quarter: 2004Q4

REPORT INFORMATION
  Report Type: 
  Country: None (occurrence: None)
  Receive Date: 20041115
  Receipt Date: 20041104
  Transmission Date: 20050328
  Serious: Yes (Life-Threatening, Hospitalization)
  Sender: FDA-Public Use
  Company Number: US-BRISTOL-MYERS SQUIBB COMPANY-12758959

PATIENT
  Age: 60 Year
  Sex: Female
  Weight: 84 kg

DRUGS (8)
  1. KENALOG-40 [Suspect]
     Indication: BACK PAIN
     Route: 030
     Dates: start: 20041022, end: 20041022
  2. XYLOCAINE [Suspect]
     Indication: BACK PAIN
     Dosage: 0.5-1% ML
     Route: 030
     Dates: start: 20041022, end: 20041022
  3. BENICAR [Concomitant]
     Dosage: DURATION FOR MORE THAN A YEAR
  4. HYDROCODONE [Concomitant]
  5. AVANDAMET [Concomitant]
     Dosage: 1 DOSAGE FORM TWICE A DAY = 2MG/500MG TAKEN FOR MORE THAN A YEAR
  6. ASPIRIN [Concomitant]
     Dosage: DURATION FOR MORE THAN A YEAR
  7. CRESTOR [Concomitant]
  8. TYLENOL [Concomitant]

REACTIONS (2)
  - NECROTISING FASCIITIS [None]
  - SEPSIS [None]
